FAERS Safety Report 7433275-5 (Version None)
Quarter: 2011Q2

REPORT INFORMATION
  Report Type: 
  Country: None (occurrence: None)
  Receive Date: 20110422
  Receipt Date: 20110414
  Transmission Date: 20111010
  Serious: Yes (Hospitalization, Other)
  Sender: FDA-Public Use
  Company Number: NL-ABBOTT-11P-114-0709079-00

PATIENT
  Sex: Female

DRUGS (10)
  1. PLANTAGO OVATA [Concomitant]
     Indication: CONSTIPATION
     Route: 048
  2. BUDESONIDE/FORMOTEROL [Concomitant]
     Indication: CHRONIC OBSTRUCTIVE PULMONARY DISEASE
  3. METHOTREXATE [Concomitant]
     Indication: RHEUMATOID ARTHRITIS
     Route: 048
  4. SERTRALINE HYDROCHLORIDE [Concomitant]
     Indication: DEPRESSION
     Route: 048
     Dates: start: 20000101
  5. HUMIRA [Suspect]
     Indication: RHEUMATOID ARTHRITIS
     Route: 058
     Dates: start: 20101223, end: 20110203
  6. PANTOPRAZOLE SODIUM [Concomitant]
     Indication: GASTRIC DISORDER
     Route: 048
  7. FOLIC ACID [Concomitant]
     Indication: VITAMIN SUPPLEMENTATION
     Route: 048
  8. LEVOTHYROXINE SODIUM [Concomitant]
     Indication: HYPOTHYROIDISM
     Route: 048
     Dates: start: 20000101
  9. BUDESONIDE/FORMOTEROL [Concomitant]
     Indication: ASTHMA
     Dosage: 200/6MCG AS NEEDED TWICE A DAY
     Route: 055
     Dates: start: 19960101
  10. HUMIRA [Suspect]
     Route: 058
     Dates: start: 20110317

REACTIONS (3)
  - RHEUMATOID ARTHRITIS [None]
  - AORTIC STENOSIS [None]
  - OTITIS MEDIA [None]
